FAERS Safety Report 9335545 (Version 1)
Quarter: 2013Q2

REPORT INFORMATION
  Report Type: Spontaneous
  Country: GB (occurrence: GB)
  Receive Date: 20130605
  Receipt Date: 20130605
  Transmission Date: 20140414
  Serious: Yes (Other)
  Sender: FDA-Public Use
  Company Number: GB-GLAXOSMITHKLINE-B0895536A

PATIENT
  Sex: Female

DRUGS (2)
  1. SEROXAT [Suspect]
     Indication: DEPRESSION
     Route: 048
  2. PARACETAMOL [Concomitant]

REACTIONS (7)
  - Suicidal ideation [Recovered/Resolved]
  - Weight increased [Recovering/Resolving]
  - Increased appetite [Recovered/Resolved]
  - Depression [Unknown]
  - Excessive skin [Not Recovered/Not Resolved]
  - Varicose vein [Not Recovered/Not Resolved]
  - Hypertension [Recovered/Resolved]
